FAERS Safety Report 23724958 (Version 2)
Quarter: 2024Q2

REPORT INFORMATION
  Report Type: Report from Study
  Country: US (occurrence: US)
  Receive Date: 20240410
  Receipt Date: 20240417
  Transmission Date: 20240716
  Serious: No
  Sender: FDA-Public Use
  Company Number: US-SANOFI-02003103

PATIENT
  Age: 69 Year
  Sex: Female

DRUGS (2)
  1. INSULIN GLULISINE [Suspect]
     Active Substance: INSULIN GLULISINE
     Indication: Type 1 diabetes mellitus
     Dosage: 5 IU, TID
     Route: 058
  2. LANTUS SOLOSTAR [Concomitant]
     Active Substance: INSULIN GLARGINE
     Indication: Type 1 diabetes mellitus
     Dosage: 30 IU, QD
     Route: 058

REACTIONS (2)
  - Blood glucose increased [Unknown]
  - Expired product administered [Unknown]

NARRATIVE: CASE EVENT DATE: 20240101
